FAERS Safety Report 7061715-2 (Version None)
Quarter: 2010Q4

REPORT INFORMATION
  Report Type: 
  Country: None (occurrence: None)
  Receive Date: 20101026
  Receipt Date: 20101020
  Transmission Date: 20110411
  Serious: Yes (Death, Life-Threatening)
  Sender: FDA-Public Use
  Company Number: FR-ROCHE-723499

PATIENT
  Sex: Female
  Weight: 50 kg

DRUGS (1)
  1. HERCEPTIN [Suspect]
     Dosage: FORM: INFUSION
     Route: 042

REACTIONS (2)
  - BRONCHOSPASM [None]
  - MALIGNANT NEOPLASM PROGRESSION [None]
